FAERS Safety Report 10963274 (Version 1)
Quarter: 2015Q1

REPORT INFORMATION
  Report Type: Spontaneous
  Country: US (occurrence: US)
  Receive Date: 20150205
  Receipt Date: 20150205
  Transmission Date: 20150721
  Serious: Yes (Death)
  Sender: FDA-Public Use
  Company Number: US-APOTEX-2015AP006227

PATIENT
  Age: 34 Year
  Sex: Female

DRUGS (5)
  1. ACETAMINOPHEN W/HYDROCODONE [Suspect]
     Active Substance: ACETAMINOPHEN\HYDROCODONE
  2. ALPRAZOLAM TABLETS USP [Suspect]
     Active Substance: ALPRAZOLAM
  3. ZOLPIDEM TARTRATE. [Suspect]
     Active Substance: ZOLPIDEM TARTRATE
  4. DIPHENHYDRAMINE [Suspect]
     Active Substance: DIPHENHYDRAMINE
  5. MORPHINE [Suspect]
     Active Substance: MORPHINE

REACTIONS (1)
  - Death [Fatal]
